FAERS Safety Report 15209796 (Version 1)
Quarter: 2018Q3

REPORT INFORMATION
  Report Type: Spontaneous
  Country: US (occurrence: US)
  Receive Date: 20180629
  Receipt Date: 20180629
  Transmission Date: 20181010
  Serious: Yes (Hospitalization)
  Sender: FDA-Public Use
  Company Number: None

PATIENT
  Age: 72 Year
  Sex: Male
  Weight: 125.65 kg

DRUGS (1)
  1. HEPARIN [Suspect]
     Active Substance: HEPARIN SODIUM
     Indication: ATRIAL FLUTTER
     Dates: start: 20180413, end: 20180418

REACTIONS (2)
  - Atrial flutter [None]
  - Thrombocytopenia [None]

NARRATIVE: CASE EVENT DATE: 20180418
